FAERS Safety Report 11760039 (Version 1)
Quarter: 2015Q4

REPORT INFORMATION
  Report Type: Spontaneous
  Country: US (occurrence: US)
  Receive Date: 20151120
  Receipt Date: 20151120
  Transmission Date: 20160304
  Serious: No
  Sender: FDA-Public Use
  Company Number: US-ELI_LILLY_AND_COMPANY-US201210009646

PATIENT
  Sex: Female

DRUGS (2)
  1. FORTEO [Suspect]
     Active Substance: TERIPARATIDE
     Dosage: UNK, QD
  2. FORTEO [Suspect]
     Active Substance: TERIPARATIDE
     Indication: OSTEOPOROSIS
     Dosage: UNK, QD

REACTIONS (11)
  - Hypoaesthesia [Unknown]
  - Musculoskeletal discomfort [Unknown]
  - Blood pressure decreased [Unknown]
  - Anxiety [Unknown]
  - Fear [Unknown]
  - Blood pressure increased [Unknown]
  - Thyroid disorder [Unknown]
  - Intentional product misuse [Unknown]
  - Medication error [Unknown]
  - Blood pressure fluctuation [Unknown]
  - Nausea [Unknown]
